FAERS Safety Report 5574935-0 (Version None)
Quarter: 2007Q4

REPORT INFORMATION
  Report Type: 
  Country: None (occurrence: None)
  Receive Date: 20071227
  Receipt Date: 20071220
  Transmission Date: 20080405
  Serious: Yes (Disabling)
  Sender: FDA-Public Use
  Company Number: A0700014A

PATIENT
  Age: 76 Year
  Sex: Male

DRUGS (4)
  1. REQUIP [Suspect]
     Indication: PARKINSON'S DISEASE
     Dosage: 4.75MG PER DAY
     Route: 048
     Dates: start: 20020101
  2. SINEMET [Concomitant]
  3. PROSCAR [Concomitant]
  4. PRILOSEC [Concomitant]

REACTIONS (1)
  - MUSCLE RIGIDITY [None]
